FAERS Safety Report 8571161-8 (Version None)
Quarter: 2012Q3

REPORT INFORMATION
  Report Type: 
  Country: None (occurrence: None)
  Receive Date: 20120806
  Receipt Date: 20120730
  Transmission Date: 20120928
  Serious: Yes (Other)
  Sender: FDA-Public Use
  Company Number: US-PFIZER INC-2012184298

PATIENT
  Sex: Female
  Weight: 63.492 kg

DRUGS (12)
  1. LYRICA [Suspect]
     Indication: FIBROMYALGIA
     Dosage: 300 MG, DAILY
     Route: 048
     Dates: start: 20070101
  2. GABAPENTIN [Suspect]
     Indication: FIBROMYALGIA
     Dosage: UNK, 3X/DAY
     Dates: start: 20110601
  3. OXYCONTIN [Concomitant]
     Indication: PAIN
     Dosage: 20 MG, AS NEEDED
  4. ADDERALL 5 [Concomitant]
     Indication: CHRONIC FATIGUE SYNDROME
     Dosage: UNK, AS NEEDED
  5. ADDERALL XR 10 [Concomitant]
     Indication: ATTENTION DEFICIT/HYPERACTIVITY DISORDER
  6. OXYCODONE [Concomitant]
     Indication: PAIN
     Dosage: UNK, AS NEEDED
  7. GABAPENTIN [Suspect]
     Dosage: 200MG DAILY
     Dates: start: 20120701
  8. ADDERALL XR 10 [Concomitant]
     Indication: CHRONIC FATIGUE SYNDROME
     Dosage: 10 MG, DAILY
  9. ADDERALL 5 [Concomitant]
     Indication: ATTENTION DEFICIT/HYPERACTIVITY DISORDER
  10. LYRICA [Suspect]
     Dosage: UNK
     Dates: start: 20120601, end: 20120701
  11. OXYCONTIN [Concomitant]
     Dosage: 20 MG, DAILY
  12. THYROID TAB [Concomitant]
     Indication: THYROIDITIS
     Dosage: 90 MG, 2X/DAY

REACTIONS (4)
  - SOMNOLENCE [None]
  - WEIGHT INCREASED [None]
  - DRUG EFFECT DECREASED [None]
  - FATIGUE [None]
